FAERS Safety Report 7363077-X (Version None)
Quarter: 2011Q1

REPORT INFORMATION
  Report Type: 
  Country: None (occurrence: None)
  Receive Date: 20110321
  Receipt Date: 20110315
  Transmission Date: 20110831
  Serious: No
  Sender: FDA-Public Use
  Company Number: US-PFIZER INC-2011004484

PATIENT
  Sex: Female
  Weight: 101.6 kg

DRUGS (2)
  1. HYDROCHLOROTHIAZIDE [Concomitant]
     Indication: HYPERTENSION
     Dosage: 25 MG, 1X/DAY
     Route: 048
  2. LIPITOR [Suspect]
     Indication: BLOOD CHOLESTEROL INCREASED
     Dosage: 10 MG, 1X/DAY, EVERY BEDTIME
     Dates: start: 20101230

REACTIONS (2)
  - FEELING ABNORMAL [None]
  - BACK PAIN [None]
